FAERS Safety Report 6001375-2 (Version None)
Quarter: 2008Q4

REPORT INFORMATION
  Report Type: 
  Country: None (occurrence: None)
  Receive Date: 20081215
  Receipt Date: 20081204
  Transmission Date: 20090506
  Serious: Yes (Hospitalization)
  Sender: FDA-Public Use
  Company Number: FR-ELI_LILLY_AND_COMPANY-FR200812001631

PATIENT
  Age: 40 Year
  Sex: Female

DRUGS (6)
  1. CYMBALTA [Suspect]
     Dosage: 60 MG, DAILY (1/D)
     Route: 048
     Dates: start: 20081109, end: 20081109
  2. CYMBALTA [Suspect]
     Dosage: 1680 MG, 28 TABLETS X 60 MG
     Route: 048
     Dates: start: 20081110
  3. ATARAX [Concomitant]
     Dosage: 25 MG, UNKNOWN
     Route: 048
  4. ATARAX [Concomitant]
     Dosage: 750 MG, 30 TABLETS X 25 MG
     Route: 048
     Dates: start: 20081110
  5. EQUANIL [Concomitant]
     Dosage: 400 MG, UNKNOWN
     Route: 048
  6. EQUANIL [Concomitant]
     Dosage: 30 G, 75 TABLETS X 400 MG
     Route: 048
     Dates: start: 20081110

REACTIONS (4)
  - CARDIOGENIC SHOCK [None]
  - COMA [None]
  - INTENTIONAL OVERDOSE [None]
  - SUICIDE ATTEMPT [None]
